FAERS Safety Report 4647033-8 (Version None)
Quarter: 2005Q2

REPORT INFORMATION
  Report Type: 
  Country: None (occurrence: None)
  Receive Date: 20050331
  Receipt Date: 20050202
  Transmission Date: 20051028
  Serious: No
  Sender: FDA-Public Use
  Company Number: 05P-163-0289430

PATIENT
  Age: 88 Year
  Sex: Female
  Weight: 58.9676 kg

DRUGS (19)
  1. HUMIRA [Suspect]
     Indication: RHEUMATOID ARTHRITIS
     Dosage: 40 MG, 1 IN 2 WK, SUBCUTANEOUS
     Route: 058
     Dates: start: 20030801, end: 20050113
  2. ESOMEPRAZOLE [Concomitant]
  3. LEVOTHYROXINE SODIUM [Concomitant]
  4. METHOTREXATE [Concomitant]
  5. PRAVASTATIN SODIUM [Concomitant]
  6. SERTRALINE HYDROCHLORIDE [Concomitant]
  7. FOLIC ACID [Concomitant]
  8. BIOTIN [Concomitant]
  9. MULTI-VITAMINS [Concomitant]
  10. ALENDRONATE SODIUM [Concomitant]
  11. CALCIUM CITRATE [Concomitant]
  12. GLUCOSAMINE [Concomitant]
  13. BENICAR [Concomitant]
  14. FEXOFENADINE HYDROCHLORIDE [Concomitant]
  15. BUCINDOLOL HYDROCHLORIDE [Concomitant]
  16. TOCOPHEROL CONCENTRATE CAP [Concomitant]
  17. ASPIRIN [Concomitant]
  18. I CAPS [Concomitant]
  19. VIT BIZ [Concomitant]

REACTIONS (4)
  - ARTHRALGIA [None]
  - BRONCHITIS [None]
  - INJECTION SITE HAEMORRHAGE [None]
  - OEDEMA PERIPHERAL [None]
